FAERS Safety Report 5452210-2 (Version None)
Quarter: 2007Q3

REPORT INFORMATION
  Report Type: 
  Country: None (occurrence: None)
  Receive Date: 20070912
  Receipt Date: 20070906
  Transmission Date: 20080115
  Serious: Yes (Death, Life-Threatening, Hospitalization, Disabling)
  Sender: FDA-Public Use
  Company Number: 16321880-07030351

PATIENT
  Age: 71 Year
  Sex: Female

DRUGS (6)
  1. REVLIMID [Suspect]
     Indication: MYELODYSPLASTIC SYNDROME
     Dosage: 10 MG, 1 IN 1 D, ORAL
     Route: 048
     Dates: start: 20070308, end: 20070320
  2. REVLIMID [Suspect]
     Indication: MYELODYSPLASTIC SYNDROME
     Dosage: 10 MG, 1 IN 1 D, ORAL
     Route: 048
     Dates: start: 20070407
  3. PREVACID [Concomitant]
  4. HUMULIN 70/30 [Concomitant]
  5. ACCUPRIL [Concomitant]
  6. PRESERVISION (PRESERVISION LUTEIN EYE) [Concomitant]

REACTIONS (8)
  - BACTERAEMIA [None]
  - DISEASE PROGRESSION [None]
  - ENDOCARDITIS [None]
  - MYELODYSPLASTIC SYNDROME [None]
  - NEUTROPENIA [None]
  - SEPTIC SHOCK [None]
  - THROMBOCYTOPENIA [None]
  - URTICARIA [None]
